FAERS Safety Report 22011503 (Version 1)
Quarter: 2023Q1

REPORT INFORMATION
  Report Type: Spontaneous
  Country: US (occurrence: US)
  Receive Date: 20230220
  Receipt Date: 20230220
  Transmission Date: 20230418
  Serious: No
  Sender: FDA-Public Use
  Company Number: US-BIOVITRUM-2023US02476

PATIENT
  Age: 1 Year
  Sex: Male
  Weight: 7 kg

DRUGS (2)
  1. SYNAGIS [Suspect]
     Active Substance: PALIVIZUMAB
     Indication: Premature baby
     Dosage: 15 MG/KG INTO THE MUSCLE
  2. SYNAGIS [Suspect]
     Active Substance: PALIVIZUMAB
     Indication: Low birth weight baby

REACTIONS (6)
  - Abdominal discomfort [Unknown]
  - Feeding disorder [Unknown]
  - Vomiting [Unknown]
  - Duodenogastric reflux [Unknown]
  - Abnormal faeces [Unknown]
  - Pyrexia [Unknown]

NARRATIVE: CASE EVENT DATE: 20230209
